FAERS Safety Report 5159593-1 (Version None)
Quarter: 2006Q4

REPORT INFORMATION
  Report Type: 
  Country: None (occurrence: None)
  Receive Date: 20061129
  Receipt Date: 20061108
  Transmission Date: 20070319
  Serious: Yes (Hospitalization)
  Sender: FDA-Public Use
  Company Number: JP-AVENTIS-200613510JP

PATIENT
  Sex: Female

DRUGS (2)
  1. KETEK [Suspect]
  2. UNKNOWN DRUG [Concomitant]

REACTIONS (1)
  - LOSS OF CONSCIOUSNESS [None]
